FAERS Safety Report 18540797 (Version 2)
Quarter: 2021Q1

REPORT INFORMATION
  Report Type: Spontaneous
  Country: JP (occurrence: JP)
  Receive Date: 20201124
  Receipt Date: 20210322
  Transmission Date: 20210419
  Serious: Yes (Other)
  Sender: FDA-Public Use
  Company Number: JP-OTSUKA-2020_029000

PATIENT
  Age: 9 Year
  Sex: Female
  Weight: 23.2 kg

DRUGS (5)
  1. ABILIFY [Suspect]
     Active Substance: ARIPIPRAZOLE
     Indication: IRRITABILITY
  2. LUVOX [Concomitant]
     Active Substance: FLUVOXAMINE MALEATE
     Indication: OBSESSIVE-COMPULSIVE DISORDER
     Dosage: 2 TABLETS, 2 TIMES/DAY
     Route: 048
  3. ABILIFY [Suspect]
     Active Substance: ARIPIPRAZOLE
     Indication: AUTISM SPECTRUM DISORDER
     Dosage: 4MG, 2 TIMES/DAY
     Route: 048
     Dates: start: 20200911, end: 20201129
  4. POLLAKISU [Concomitant]
     Active Substance: OXYBUTYNIN CHLORIDE
     Indication: PRODUCT USED FOR UNKNOWN INDICATION
     Dosage: 2.5 TABLETS, 2 TIMES/DAY
     Route: 048
  5. KEFRAL [Concomitant]
     Active Substance: CEFACLOR
     Indication: PROPHYLAXIS URINARY TRACT INFECTION
     Dosage: UNK
     Route: 048

REACTIONS (1)
  - Hydronephrosis [Recovering/Resolving]

NARRATIVE: CASE EVENT DATE: 20201023
